FAERS Safety Report 8920114 (Version 1)
Quarter: 2012Q4

REPORT INFORMATION
  Report Type: 
  Country: CO (occurrence: CO)
  Receive Date: 20121121
  Receipt Date: 20121121
  Transmission Date: 20130627
  Serious: Yes (Other)
  Sender: FDA-Public Use
  Company Number: CO-PFIZER INC-2012289756

PATIENT
  Age: 15 Year
  Sex: Male

DRUGS (3)
  1. GENOTROPIN [Suspect]
     Indication: FAILURE TO THRIVE
     Dosage: 2.0 mg, 1x/day
     Route: 058
     Dates: start: 2011
  2. TAXUS [Concomitant]
     Indication: VERTEBRAL INJURY
     Dosage: 250 mg, 1x/day
     Route: 048
     Dates: start: 2011
  3. KID CAL [Concomitant]
     Indication: UNDERWEIGHT
     Dosage: UNK
     Route: 048
     Dates: start: 2011

REACTIONS (2)
  - Pituitary tumour benign [Not Recovered/Not Resolved]
  - Myopia [Not Recovered/Not Resolved]
